FAERS Safety Report 13133731 (Version 1)
Quarter: 2017Q1

REPORT INFORMATION
  Report Type: Spontaneous
  Country: US (occurrence: US)
  Receive Date: 20170120
  Receipt Date: 20170120
  Transmission Date: 20170428
  Serious: No
  Sender: FDA-Public Use
  Company Number: US-OTSUKA-2016_026298

PATIENT
  Sex: Male

DRUGS (1)
  1. REXULTI [Suspect]
     Active Substance: BREXPIPRAZOLE
     Indication: BIPOLAR DISORDER
     Dosage: UNK
     Route: 065
     Dates: start: 2016

REACTIONS (4)
  - Condition aggravated [Unknown]
  - Off label use [Unknown]
  - Pollakiuria [Unknown]
  - Micturition urgency [Unknown]

NARRATIVE: CASE EVENT DATE: 2016
